FAERS Safety Report 5179595-9 (Version None)
Quarter: 2006Q4

REPORT INFORMATION
  Report Type: 
  Country: None (occurrence: None)
  Receive Date: 20061211
  Receipt Date: 20061128
  Transmission Date: 20070319
  Serious: Yes (Other)
  Sender: FDA-Public Use
  Company Number: 2006146808

PATIENT
  Age: 53 Year
  Sex: Female
  Weight: 78.0187 kg

DRUGS (21)
  1. NEURONTIN [Suspect]
     Indication: NEUROPATHY
     Dosage: 900 MG (300 MG, 3 IN 1 D)
  2. NEURONTIN [Suspect]
     Indication: RESTLESS LEGS SYNDROME
     Dosage: 900 MG (300 MG, 3 IN 1 D)
  3. CHANTIX [Suspect]
     Indication: SMOKING CESSATION THERAPY
     Dates: start: 20061025
  4. ELIXOPHYLLIN (THEOPHYLLINE) [Concomitant]
  5. AMBIEN [Concomitant]
  6. LEVBID (HYSOCYAMINE SULFATE) [Concomitant]
  7. POTASSIUM (POTASSIUM) [Concomitant]
  8. LASIX [Concomitant]
  9. AMITIZA (LUBIPROSTONE) [Concomitant]
  10. FLONASE [Concomitant]
  11. CALCIUM CITRATE (CALCIUM CITRATE) [Concomitant]
  12. IRON (IRON) [Concomitant]
  13. MULTIVITAMIN [Concomitant]
  14. FISH OIL (FISH OIL) [Concomitant]
  15. VITAMIN B12 [Concomitant]
  16. BUSPAR [Suspect]
     Indication: ANXIETY
     Dosage: 30 MG (15 MG, 2 IN 1 D)
  17. DOXEPIN HCL [Suspect]
     Indication: BIPOLAR I DISORDER
     Dosage: 150 MG (50 MG, 3 IN 1 D)
  18. DOXEPIN HCL [Suspect]
     Indication: MOOD ALTERED
     Dosage: 150 MG (50 MG, 3 IN 1 D)
  19. EFFEXOR XR [Suspect]
     Indication: BIPOLAR I DISORDER
     Dosage: 150 MG (150 MG, DAILY: EVERY DAY)
  20. ZONEGRAN [Suspect]
     Indication: BIPOLAR I DISORDER
     Dosage: 200 MG (100 MG, BID: EVERY DAY)
  21. ZONEGRAN [Suspect]
     Indication: MOOD ALTERED
     Dosage: 200 MG (100 MG, BID: EVERY DAY)

REACTIONS (12)
  - AFFECTIVE DISORDER [None]
  - AMNESIA [None]
  - BACK INJURY [None]
  - BIPOLAR I DISORDER [None]
  - CANDIDIASIS [None]
  - FALL [None]
  - GASTRIC BYPASS [None]
  - JOINT INJURY [None]
  - LIMB INJURY [None]
  - LOSS OF CONSCIOUSNESS [None]
  - NERVOUSNESS [None]
  - STOMATITIS [None]
